FAERS Safety Report 9523488 (Version 1)
Quarter: 2013Q3

REPORT INFORMATION
  Report Type: Spontaneous
  Country: US (occurrence: US)
  Receive Date: 20130913
  Receipt Date: 20130913
  Transmission Date: 20140515
  Serious: Yes (Other)
  Sender: FDA-Public Use
  Company Number: US-GLAXOSMITHKLINE-A1041187A

PATIENT
  Age: 73 Year
  Sex: Female

DRUGS (2)
  1. FLONASE [Suspect]
     Indication: SINUS DISORDER
     Dosage: 2SPR UNKNOWN
     Route: 045
     Dates: start: 2011, end: 2013
  2. UNSPECIFIED MEDICATION [Concomitant]

REACTIONS (2)
  - Eye haemorrhage [Recovered/Resolved]
  - Ocular hyperaemia [Recovering/Resolving]
